FAERS Safety Report 4512633-2 (Version None)
Quarter: 2004Q4

REPORT INFORMATION
  Report Type: 
  Country: None (occurrence: None)
  Receive Date: 20041129
  Receipt Date: 20041119
  Transmission Date: 20050328
  Serious: Yes (Life-Threatening)
  Sender: FDA-Public Use
  Company Number: US-MERCK-0411USA03407

PATIENT
  Age: 57 Year
  Sex: Female

DRUGS (2)
  1. VIOXX [Suspect]
     Indication: ARTHRITIS
     Route: 048
     Dates: start: 20000101, end: 20030101
  2. TYLENOL W/ CODEINE NO. 4 [Concomitant]
     Route: 065

REACTIONS (3)
  - HEADACHE [None]
  - HYPERTENSION [None]
  - LIVER DISORDER [None]
